FAERS Safety Report 5573227-3 (Version None)
Quarter: 2007Q4

REPORT INFORMATION
  Report Type: 
  Country: None (occurrence: None)
  Receive Date: 20071220
  Receipt Date: 20071127
  Transmission Date: 20080405
  Serious: Yes (Hospitalization)
  Sender: FDA-Public Use
  Company Number: VE200712001730

PATIENT
  Age: 19 Year
  Sex: Female

DRUGS (3)
  1. ZYPREXA [Suspect]
     Indication: DYSMORPHOPHOBIA
     Dosage: 2.5 MG, DAILY (1/D), ORAL
     Route: 048
  2. PROZAC [Suspect]
     Dosage: 20 MG, DAILY (1/D), ORAL
     Route: 048
  3. REMERON [Concomitant]

REACTIONS (2)
  - HYPOTENSION [None]
  - MALNUTRITION [None]
